FAERS Safety Report 8112761 (Version 16)
Quarter: 2018Q2

REPORT INFORMATION
  Report Type: Spontaneous
  Country: IE (occurrence: IE)
  Receive Date: 20110830
  Receipt Date: 20180628
  Transmission Date: 20180711
  Serious: Yes (Other)
  Sender: FDA-Public Use
  Company Number: PHHY2011IE69978

PATIENT
  Age: 58 Year
  Sex: Female

DRUGS (4)
  1. TENORMIN [Concomitant]
     Active Substance: ATENOLOL
     Indication: PRODUCT USED FOR UNKNOWN INDICATION
     Dosage: 50 MG, UNK
     Route: 048
  2. RASILEZ [Suspect]
     Active Substance: ALISKIREN
     Indication: HYPERTENSION
     Dosage: 150 MG, UNK
     Route: 048
     Dates: start: 20110720, end: 20110723
  3. RASILEZ [Suspect]
     Active Substance: ALISKIREN
     Dosage: UNK
     Route: 048
     Dates: start: 2012
  4. ASPIRIN. [Concomitant]
     Active Substance: ASPIRIN
     Indication: PRODUCT USED FOR UNKNOWN INDICATION
     Route: 065

REACTIONS (74)
  - Alopecia [Unknown]
  - Pain [Unknown]
  - Breast disorder [Unknown]
  - Bone disorder [Unknown]
  - Aortic disorder [Unknown]
  - Dermatitis [Unknown]
  - Eyelid oedema [Recovered/Resolved]
  - Muscle atrophy [Unknown]
  - Erythema [Unknown]
  - Vomiting [Unknown]
  - Lymphadenopathy [Unknown]
  - Swelling face [Unknown]
  - Burning sensation [Unknown]
  - Dyspepsia [Unknown]
  - Pain of skin [Unknown]
  - Rash [Unknown]
  - Hyperkalaemia [Unknown]
  - Transient ischaemic attack [Unknown]
  - Blood pressure increased [Unknown]
  - Skin disorder [Unknown]
  - Lip exfoliation [Unknown]
  - Eye swelling [Recovering/Resolving]
  - Asthenia [Unknown]
  - Hyperparathyroidism secondary [Unknown]
  - Acidosis [Unknown]
  - Palatal disorder [Unknown]
  - Renal disorder [Unknown]
  - Arthralgia [Unknown]
  - Dry skin [Unknown]
  - Mouth ulceration [Unknown]
  - Abdominal pain [Unknown]
  - Vertigo [Unknown]
  - Feeling abnormal [Unknown]
  - Lacrimation increased [Unknown]
  - Limb discomfort [Unknown]
  - Abdominal discomfort [Unknown]
  - Odynophagia [Unknown]
  - Diarrhoea [Unknown]
  - Hepatic cyst [Unknown]
  - Radiation sickness syndrome [Unknown]
  - Cerebral haemorrhage [Unknown]
  - Thyroid disorder [Unknown]
  - Eye disorder [Unknown]
  - Tongue discolouration [Unknown]
  - Toxicity to various agents [Unknown]
  - Scar [Unknown]
  - Tooth disorder [Unknown]
  - Angiopathy [Unknown]
  - Skin discolouration [Unknown]
  - Pain in extremity [Unknown]
  - Yellow skin [Unknown]
  - Tremor [Unknown]
  - Hepatic enzyme increased [Unknown]
  - Schizophrenia [Unknown]
  - Vision blurred [Unknown]
  - Trichorrhexis [Unknown]
  - Tooth discolouration [Unknown]
  - Flushing [Unknown]
  - Mass [Unknown]
  - Musculoskeletal stiffness [Unknown]
  - Lung disorder [Unknown]
  - Heart rate irregular [Unknown]
  - Immune system disorder [Unknown]
  - Contusion [Unknown]
  - Hyponatraemia [Unknown]
  - Swelling [Recovered/Resolved]
  - Chest pain [Unknown]
  - Oropharyngeal pain [Unknown]
  - Tension headache [Unknown]
  - Oedema peripheral [Unknown]
  - Cataract [Unknown]
  - Eye infection [Unknown]
  - Eye pain [Unknown]
  - Back pain [Unknown]

NARRATIVE: CASE EVENT DATE: 20110722
